FAERS Safety Report 6876281-1 (Version None)
Quarter: 2010Q3

REPORT INFORMATION
  Report Type: 
  Country: None (occurrence: None)
  Receive Date: 20100727
  Receipt Date: 20100719
  Transmission Date: 20110219
  Serious: Yes (Hospitalization)
  Sender: FDA-Public Use
  Company Number: B0664976A

PATIENT
  Sex: Male

DRUGS (4)
  1. NABUMETONE [Suspect]
     Indication: SCIATICA
     Dosage: 500MG FOUR TIMES PER DAY
     Route: 048
     Dates: start: 20100423, end: 20100429
  2. ALLOPURINOL [Concomitant]
     Dosage: 200MG PER DAY
     Route: 048
  3. PARACETAMOL [Concomitant]
     Indication: PAIN
  4. MIOREL [Concomitant]
     Indication: MYALGIA
     Dosage: 2U PER DAY
     Route: 048
     Dates: start: 20100423, end: 20100429

REACTIONS (1)
  - PURPURA [None]
